FAERS Safety Report 12202269 (Version 3)
Quarter: 2016Q2

REPORT INFORMATION
  Report Type: Spontaneous
  Country: US (occurrence: US)
  Receive Date: 20160322
  Receipt Date: 20160404
  Transmission Date: 20160815
  Serious: Yes (Hospitalization, Other)
  Sender: FDA-Public Use
  Company Number: US-PFIZER INC-2016159577

PATIENT
  Age: 16 Year
  Sex: Female

DRUGS (5)
  1. LAMOTRIGINE. [Suspect]
     Active Substance: LAMOTRIGINE
     Indication: DEPRESSION
     Dosage: UNK
  2. ZIPRASIDONE HCL [Suspect]
     Active Substance: ZIPRASIDONE HYDROCHLORIDE
     Dosage: 80 MG, DAILY
  3. LAMOTRIGINE. [Suspect]
     Active Substance: LAMOTRIGINE
     Indication: ANXIETY
  4. BUPROPION. [Concomitant]
     Active Substance: BUPROPION
     Indication: DEPRESSED MOOD
     Dosage: UNK
  5. ZIPRASIDONE HCL [Suspect]
     Active Substance: ZIPRASIDONE HYDROCHLORIDE
     Indication: AFFECTIVE DISORDER
     Dosage: 40 MG, UNK

REACTIONS (9)
  - Agitation [Unknown]
  - Sleep disorder [Unknown]
  - Thinking abnormal [Unknown]
  - Anhedonia [Unknown]
  - Anxiety [Unknown]
  - Condition aggravated [Unknown]
  - Decreased interest [Unknown]
  - Suicidal ideation [Unknown]
  - Irritability [Unknown]

NARRATIVE: CASE EVENT DATE: 201501
